FAERS Safety Report 5328689-3 (Version None)
Quarter: 2007Q2

REPORT INFORMATION
  Report Type: 
  Country: None (occurrence: None)
  Receive Date: 20070518
  Receipt Date: 20070510
  Transmission Date: 20071010
  Serious: Yes (Life-Threatening)
  Sender: FDA-Public Use
  Company Number: B0470182A

PATIENT
  Age: 65 Year
  Sex: Female
  Weight: 67 kg

DRUGS (8)
  1. FLOLAN [Suspect]
     Route: 042
  2. CALCIPARINE [Concomitant]
     Route: 058
  3. TRACLEER [Concomitant]
     Route: 048
  4. PREVISCAN [Concomitant]
     Dosage: 20MG PER DAY
     Route: 048
     Dates: end: 20070416
  5. ALDACTONE [Concomitant]
     Dosage: 75MG PER DAY
     Route: 048
  6. AMLOR [Concomitant]
     Route: 048
  7. EQUANIL [Concomitant]
     Route: 048
  8. PERFALGAN [Concomitant]
     Dosage: 1G PER DAY
     Route: 065

REACTIONS (8)
  - CEREBROVASCULAR DISORDER [None]
  - CYANOSIS [None]
  - DYSPNOEA [None]
  - EXTENSOR PLANTAR RESPONSE [None]
  - EXTRAPYRAMIDAL DISORDER [None]
  - FALL [None]
  - HEMIPLEGIA [None]
  - MALAISE [None]
